FAERS Safety Report 8033362-7 (Version None)
Quarter: 2012Q1

REPORT INFORMATION
  Report Type: 
  Country: None (occurrence: None)
  Receive Date: 20120110
  Receipt Date: 20111227
  Transmission Date: 20120608
  Serious: Yes (Other)
  Sender: FDA-Public Use
  Company Number: ES-CELGENEUS-144-50794-11123567

PATIENT
  Age: 66 Year
  Sex: Female

DRUGS (3)
  1. RED BLOOD CELLS [Concomitant]
     Dosage: .0667 DOSAGE FORMS
     Route: 065
     Dates: start: 20110501, end: 20111001
  2. VIDAZA [Suspect]
     Indication: ACUTE MYELOID LEUKAEMIA
     Dates: start: 20110525, end: 20111112
  3. DERMATOLOGICAL CREAM [Concomitant]
     Route: 061
     Dates: start: 20110601, end: 20110601

REACTIONS (4)
  - DIARRHOEA [None]
  - PRURITUS [None]
  - THROMBOCYTOPENIA [None]
  - TOXICITY TO VARIOUS AGENTS [None]
